FAERS Safety Report 9177130 (Version 1)
Quarter: 2013Q1

REPORT INFORMATION
  Report Type: Report from Study
  Country: JP (occurrence: JP)
  Receive Date: 20130321
  Receipt Date: 20130321
  Transmission Date: 20140127
  Serious: Yes (Death, Life-Threatening, Other)
  Sender: FDA-Public Use
  Company Number: JP-GENZYME-THYM-1002977

PATIENT
  Age: 62 None
  Sex: Male
  Weight: 65 kg

DRUGS (5)
  1. THYMOGLOBULIN [Suspect]
     Indication: APLASTIC ANAEMIA
     Dosage: 225 MG, QD
     Route: 042
     Dates: start: 20111107, end: 20111111
  2. CICLOSPORIN [Suspect]
     Indication: APLASTIC ANAEMIA
     Dosage: UNK
     Route: 065
     Dates: start: 20111107, end: 20111120
  3. METHYLPREDNISOLONE [Suspect]
     Indication: PREMEDICATION
     Dosage: UNK
     Route: 065
     Dates: start: 20111107, end: 20111111
  4. PREDNISOLONE [Suspect]
     Indication: PREMEDICATION
     Dosage: UNK
     Route: 065
     Dates: start: 20111112, end: 20111121
  5. FILGRASTIM [Concomitant]
     Indication: APLASTIC ANAEMIA
     Dosage: UNK
     Route: 065
     Dates: start: 20111103, end: 20111117

REACTIONS (6)
  - Cardiac arrest [Fatal]
  - Shock [Fatal]
  - Bacterial sepsis [Fatal]
  - Pseudomembranous colitis [Fatal]
  - Klebsiella sepsis [Recovered/Resolved]
  - Enterococcal bacteraemia [Unknown]
